FAERS Safety Report 9837297 (Version 1)
Quarter: 2013Q4

REPORT INFORMATION
  Report Type: Spontaneous
  Country: US (occurrence: None)
  Receive Date: 20131205
  Receipt Date: 20131205
  Transmission Date: 20140711
  Serious: Yes (Other)
  Sender: FDA-Public Use
  Company Number: 163-POMAL-13093617

PATIENT
  Age: 79 Year
  Sex: Male
  Weight: 79.38 kg

DRUGS (18)
  1. POMALYST [Suspect]
     Indication: PLASMA CELL MYELOMA
     Dosage: 3 MG, 21 IN 21 D, PO
     Route: 048
     Dates: start: 20130906, end: 20130915
  2. PREDNISONE(PREDNISONE) [Concomitant]
  3. DEXAMETHASONE(DEXAMETHASONE) [Concomitant]
  4. ALLOPURINOL(ALLOPURINOL) [Concomitant]
  5. FUROSEMIDE(FUROSEMIDE) [Concomitant]
  6. GABAPENTIN(GABAPENTIN) [Concomitant]
  7. GLIPIZIDE(GLIPIZIDE) [Concomitant]
  8. VALIUM(DIAZEPAM) [Concomitant]
  9. KLOR-CON(POTASSIUM CHLORIDE) [Concomitant]
  10. LORATADINE(LORATADINE) [Concomitant]
  11. PRILOSECT(OMEPRAZOLE) [Concomitant]
  12. TOPROL XL (METOPROLOL SUCCINATE) [Concomitant]
  13. VALCYCLOVIR [Concomitant]
  14. AMBIEN(ZOLPIDEM TARTRATE) [Concomitant]
  15. ARANESP(DARBEPOETIN ALFA) [Concomitant]
  16. PERCOCET (OXYCOCET) [Concomitant]
  17. NEUPOGEN(FILGRASTIM) [Concomitant]
  18. AMOXICILLIN(AMOXICILIN) [Concomitant]

REACTIONS (5)
  - Movement disorder [None]
  - Blood glucose increased [None]
  - Pain in extremity [None]
  - Fatigue [None]
  - Blood creatinine increased [None]
